FAERS Safety Report 11037645 (Version 1)
Quarter: 2015Q2

REPORT INFORMATION
  Report Type: Spontaneous
  Country: None (occurrence: None)
  Receive Date: 20150415
  Receipt Date: 20150415
  Transmission Date: 20150821
  Serious: No
  Sender: FDA-Public Use
  Company Number: None

PATIENT
  Age: 47 Year
  Sex: Female
  Weight: 87.54 kg

DRUGS (2)
  1. IBUPROFEN. [Concomitant]
     Active Substance: IBUPROFEN
  2. MIRENA [Suspect]
     Active Substance: LEVONORGESTREL

REACTIONS (11)
  - Pruritus [None]
  - Libido decreased [None]
  - Alopecia [None]
  - Rhinorrhoea [None]
  - Weight increased [None]
  - Cough [None]
  - Affective disorder [None]
  - Pelvic pain [None]
  - Depressed mood [None]
  - Thinking abnormal [None]
  - Irritability [None]
